FAERS Safety Report 5151190-7 (Version None)
Quarter: 2006Q4

REPORT INFORMATION
  Report Type: 
  Country: None (occurrence: None)
  Receive Date: 20061114
  Receipt Date: 20061114
  Transmission Date: 20070319
  Serious: Yes (Disabling)
  Sender: FDA-Public Use
  Company Number: None

PATIENT
  Age: 69 Year
  Sex: Female
  Weight: 63.5036 kg

DRUGS (1)
  1. LEVAQUIN [Suspect]
     Indication: COLONOSCOPY
     Dosage: 1    DAILY    PO
     Route: 048
     Dates: start: 20060917, end: 20060920

REACTIONS (2)
  - ABASIA [None]
  - TENDONITIS [None]
